FAERS Safety Report 7340774-3 (Version None)
Quarter: 2011Q1

REPORT INFORMATION
  Report Type: 
  Country: None (occurrence: None)
  Receive Date: 20110228
  Receipt Date: 20110222
  Transmission Date: 20110831
  Serious: Yes (Hospitalization)
  Sender: FDA-Public Use
  Company Number: WAES 1102USA02629

PATIENT
  Sex: Female
  Weight: 68.9467 kg

DRUGS (4)
  1. PRINIVIL [Suspect]
     Dosage: PO
     Route: 048
  2. PEGINTERFERON ALFA-2A [Suspect]
     Indication: HEPATITIS C
     Dosage: 96 MICROGM/WK/SC; 400 MG, DAILY;
     Route: 058
     Dates: start: 20100317
  3. BOCEPREVIR [Suspect]
     Indication: HEPATITIS C
     Dosage: 1600 MG, DAILY, PO
     Route: 048
     Dates: start: 20100413
  4. RIBAVIRIN [Suspect]
     Indication: HEPATITIS C
     Dosage: 800 MG, DAILY, PO
     Route: 048
     Dates: start: 20100317

REACTIONS (3)
  - BLOOD POTASSIUM DECREASED [None]
  - LOSS OF CONSCIOUSNESS [None]
  - DEHYDRATION [None]
